FAERS Safety Report 7108738-2 (Version None)
Quarter: 2010Q4

REPORT INFORMATION
  Report Type: 
  Country: None (occurrence: None)
  Receive Date: 20101112
  Receipt Date: 20101029
  Transmission Date: 20110411
  Serious: Yes (Hospitalization)
  Sender: FDA-Public Use
  Company Number: DSA_44167_2010

PATIENT
  Age: 62 Year
  Sex: Female

DRUGS (9)
  1. ENALAPRIL MALEATE [Suspect]
     Indication: MYOCARDIAL ISCHAEMIA
     Dosage: 10 MG QD ORAL
     Route: 048
     Dates: start: 20090101, end: 20090809
  2. LASIX [Suspect]
     Indication: MYOCARDIAL ISCHAEMIA
     Dosage: 25 MG QD ORAL
     Route: 048
     Dates: start: 20090101
  3. METFORAL (METFORAL-METFORMIN HCL) (NOT SPECIFIED) [Suspect]
     Indication: DIABETES MELLITUS
     Dosage: 300 MY DAILY ORAL
     Route: 048
     Dates: start: 20090101, end: 20100809
  4. ASPIRIN [Concomitant]
  5. DILATREND [Concomitant]
  6. ESKIM [Concomitant]
  7. PANTORC /01263202/ [Concomitant]
  8. ZOLOFT [Concomitant]
  9. SINVACOR [Concomitant]

REACTIONS (4)
  - ACIDOSIS [None]
  - DEHYDRATION [None]
  - MULTIPLE DRUG OVERDOSE [None]
  - RENAL FAILURE ACUTE [None]
